FAERS Safety Report 8807954 (Version 2)
Quarter: 2015Q1

REPORT INFORMATION
  Report Type: Report from Study
  Country: US (occurrence: US)
  Receive Date: 20120925
  Receipt Date: 20150306
  Transmission Date: 20150721
  Serious: Yes (Death)
  Sender: FDA-Public Use
  Company Number: US-ROCHE-1098651

PATIENT
  Sex: Female

DRUGS (31)
  1. KEPPRA [Concomitant]
     Active Substance: LEVETIRACETAM
     Route: 048
  2. KLONOPIN [Concomitant]
     Active Substance: CLONAZEPAM
     Route: 048
  3. AMBIEN [Concomitant]
     Active Substance: ZOLPIDEM TARTRATE
     Dosage: Q.H.S
     Route: 048
  4. FENTANYL CITRATE. [Concomitant]
     Active Substance: FENTANYL CITRATE
     Route: 065
  5. DEXAMETHASONE. [Concomitant]
     Active Substance: DEXAMETHASONE
     Route: 048
  6. LAMICTAL [Concomitant]
     Active Substance: LAMOTRIGINE
     Route: 048
  7. VANCOCIN HCL [Concomitant]
     Route: 048
  8. AVASTIN [Suspect]
     Active Substance: BEVACIZUMAB
     Indication: BRAIN NEOPLASM MALIGNANT
     Route: 042
  9. PERATIVE [Concomitant]
     Route: 048
  10. ROXANOL [Concomitant]
     Active Substance: MORPHINE SULFATE
     Dosage: 0.25-0.5 ML Q4H PRN
     Route: 048
  11. CPT-11 [Concomitant]
     Active Substance: IRINOTECAN
  12. DIFLUCAN [Concomitant]
     Active Substance: FLUCONAZOLE
     Route: 048
  13. ATIVAN [Concomitant]
     Active Substance: LORAZEPAM
  14. LEXAPRO [Concomitant]
     Active Substance: ESCITALOPRAM OXALATE
     Route: 048
  15. SENOKOTXTRA [Concomitant]
     Active Substance: SENNOSIDES
     Route: 048
  16. LOVENOX [Concomitant]
     Active Substance: ENOXAPARIN SODIUM
     Route: 058
  17. KEFLEX [Concomitant]
     Active Substance: CEPHALEXIN
     Route: 048
  18. LORTAB (UNITED STATES) [Concomitant]
     Indication: PAIN
     Route: 048
  19. BACTROBAN [Concomitant]
     Active Substance: MUPIROCIN\MUPIROCIN CALCIUM
  20. TEMODAR [Concomitant]
     Active Substance: TEMOZOLOMIDE
  21. PREVACID [Concomitant]
     Active Substance: LANSOPRAZOLE
     Route: 050
  22. AUGMENTIN [Concomitant]
     Active Substance: AMOXICILLIN\CLAVULANATE POTASSIUM
     Route: 048
  23. DURAGESIC [Concomitant]
     Active Substance: FENTANYL
     Route: 065
  24. SEROQUEL [Concomitant]
     Active Substance: QUETIAPINE FUMARATE
     Route: 048
  25. SYNTHROID [Concomitant]
     Active Substance: LEVOTHYROXINE SODIUM
     Route: 048
  26. MIRALAX [Concomitant]
     Active Substance: POLYETHYLENE GLYCOL 3350
     Route: 048
  27. NEOSPORIN [Concomitant]
     Active Substance: BACITRACIN ZINC\NEOMYCIN SULFATE\POLYMYXIN B SULFATE
     Route: 061
  28. REGLAN [Concomitant]
     Active Substance: METOCLOPRAMIDE HYDROCHLORIDE
     Route: 048
  29. DUONEB [Concomitant]
     Active Substance: ALBUTEROL SULFATE\IPRATROPIUM BROMIDE
     Route: 011
  30. METFORMIN [Concomitant]
     Active Substance: METFORMIN HYDROCHLORIDE
     Route: 065
  31. TEGADERM [Concomitant]
     Active Substance: 2-HYDROXYETHYL METHACRYLATE

REACTIONS (15)
  - Neurological decompensation [Unknown]
  - Laceration [Unknown]
  - Drug ineffective [Unknown]
  - Pyrexia [Unknown]
  - Ileus [Unknown]
  - Off label use [Unknown]
  - Bone marrow failure [Unknown]
  - Death [Fatal]
  - Seizure [Unknown]
  - Impaired healing [Unknown]
  - Somnolence [Unknown]
  - Disease progression [Unknown]
  - Pain [Unknown]
  - Fatigue [Unknown]
  - Lethargy [Unknown]
